FAERS Safety Report 23234245 (Version 2)
Quarter: 2023Q4

REPORT INFORMATION
  Report Type: Report from Study
  Country: US (occurrence: US)
  Receive Date: 20231128
  Receipt Date: 20231221
  Transmission Date: 20240109
  Serious: Yes (Other)
  Sender: FDA-Public Use
  Company Number: US-TAKEDA-2023TUS103040

PATIENT
  Age: 25 Year
  Sex: Male

DRUGS (1)
  1. VEDOLIZUMAB [Suspect]
     Active Substance: VEDOLIZUMAB
     Indication: Colitis ulcerative
     Dosage: 300 MILLIGRAM
     Route: 042
     Dates: start: 20230907

REACTIONS (3)
  - Colitis ulcerative [Not Recovered/Not Resolved]
  - Fatigue [Recovered/Resolved]
  - Therapeutic reaction time decreased [Not Recovered/Not Resolved]

NARRATIVE: CASE EVENT DATE: 20231019
